FAERS Safety Report 14279267 (Version 1)
Quarter: 2017Q4

REPORT INFORMATION
  Report Type: Spontaneous
  Country: GB (occurrence: GB)
  Receive Date: 20171212
  Receipt Date: 20171212
  Transmission Date: 20180321
  Serious: Yes (Other)
  Sender: FDA-Public Use
  Company Number: BAXTER-2017BAX040911

PATIENT
  Age: 62 Year
  Sex: Female
  Weight: 95 kg

DRUGS (4)
  1. BRINZOLAMIDE [Concomitant]
     Active Substance: BRINZOLAMIDE
     Indication: OPTIC ATROPHY
  2. CEFALEXIN [Suspect]
     Active Substance: CEPHALEXIN
     Indication: ABDOMINAL PAIN LOWER
     Dosage: 5 DAY COURSE
     Dates: start: 20171019, end: 20171020
  3. XALATAN [Concomitant]
     Active Substance: LATANOPROST
     Indication: OPTIC ATROPHY
  4. METRONIDAZOLE 500 MG / 100 ML INTRAVENOUS INFUSION [Suspect]
     Active Substance: METRONIDAZOLE
     Indication: ABDOMINAL PAIN LOWER
     Dosage: 5 DAY COURSE
     Dates: start: 20171019, end: 20171020

REACTIONS (2)
  - Pruritus [None]
  - Rash papular [None]
